FAERS Safety Report 8271779-6 (Version None)
Quarter: 2012Q2

REPORT INFORMATION
  Report Type: 
  Country: None (occurrence: None)
  Receive Date: 20120410
  Receipt Date: 20120404
  Transmission Date: 20120825
  Serious: No
  Sender: FDA-Public Use
  Company Number: US-PFIZER INC-2012085508

PATIENT
  Sex: Female
  Weight: 56.689 kg

DRUGS (3)
  1. ANGELIQ [Suspect]
     Indication: HOT FLUSH
     Dosage: 0.5/1MG DAILY
     Dates: start: 20111101, end: 20111201
  2. PREMPRO [Suspect]
     Indication: CHILLS
     Dosage: 0.625/2.5 MG, DAILY
     Dates: start: 20110901
  3. PREMPRO [Suspect]
     Indication: HOT FLUSH

REACTIONS (3)
  - HEADACHE [None]
  - HOT FLUSH [None]
  - DIZZINESS [None]
